FAERS Safety Report 18700437 (Version 1)
Quarter: 2021Q1

REPORT INFORMATION
  Report Type: Spontaneous
  Country: US (occurrence: US)
  Receive Date: 20210104
  Receipt Date: 20210104
  Transmission Date: 20210419
  Serious: Yes (Death)
  Sender: FDA-Public Use
  Company Number: None

PATIENT
  Age: 72 Year
  Sex: Female
  Weight: 80 kg

DRUGS (1)
  1. KYMRIAH [Suspect]
     Active Substance: TISAGENLECLEUCEL
     Indication: DIFFUSE LARGE B-CELL LYMPHOMA
     Dates: start: 20201102, end: 20201102

REACTIONS (16)
  - Acute kidney injury [None]
  - Acute left ventricular failure [None]
  - Lethargy [None]
  - Encephalopathy [None]
  - Myositis [None]
  - Hypoperfusion [None]
  - Neurotoxicity [None]
  - Encephalitis autoimmune [None]
  - Enterococcal bacteraemia [None]
  - Confusional state [None]
  - Mental status changes [None]
  - Transaminases increased [None]
  - Somnolence [None]
  - Asthenia [None]
  - Pyrexia [None]
  - Hypoxia [None]

NARRATIVE: CASE EVENT DATE: 20201221
